FAERS Safety Report 24307584 (Version 1)
Quarter: 2024Q3

REPORT INFORMATION
  Report Type: Report from Study
  Country: FR (occurrence: FR)
  Receive Date: 20240911
  Receipt Date: 20240911
  Transmission Date: 20241017
  Serious: Yes (Hospitalization, Other)
  Sender: NOVARTIS
  Company Number: FR-002147023-NVSC2024FR131460

PATIENT
  Age: 64 Year
  Sex: Male
  Weight: 90 kg

DRUGS (1)
  1. PLUVICTO [Suspect]
     Active Substance: LUTETIUM LU-177 VIPIVOTIDE TETRAXETAN
     Indication: Prostate cancer
     Dosage: 7193 MBQ, CYCLIC (ONCE (CYCLE 1)
     Route: 042
     Dates: start: 20240611, end: 20240611

REACTIONS (10)
  - Pulmonary embolism [Unknown]
  - Septic shock [Unknown]
  - Anaemia [Unknown]
  - Acute kidney injury [Unknown]
  - Vomiting [Unknown]
  - Dehydration [Unknown]
  - Deep vein thrombosis [Unknown]
  - Laboratory test abnormal [Unknown]
  - Weight decreased [Unknown]
  - General physical health deterioration [Unknown]

NARRATIVE: CASE EVENT DATE: 20240101
